FAERS Safety Report 25570500 (Version 3)
Quarter: 2025Q3

REPORT INFORMATION
  Report Type: Spontaneous
  Country: US (occurrence: US)
  Receive Date: 20250717
  Receipt Date: 20250930
  Transmission Date: 20251020
  Serious: No
  Sender: BRISTOL-MYERS SQUIBB COMPANY
  Company Number: US-BRISTOL-MYERS SQUIBB COMPANY-2025-099975

PATIENT
  Age: 55 Year
  Sex: Female

DRUGS (2)
  1. ORENCIA [Suspect]
     Active Substance: ABATACEPT
     Indication: Rheumatoid arthritis
     Dosage: EVERY 7 DAYS
     Dates: start: 202501
  2. ORENCIA [Suspect]
     Active Substance: ABATACEPT
     Dosage: EVERY 7 DAYS
     Dates: start: 202501

REACTIONS (5)
  - Joint swelling [Unknown]
  - Infection [Unknown]
  - Pain [Unknown]
  - Loss of personal independence in daily activities [Unknown]
  - Arthralgia [Unknown]

NARRATIVE: CASE EVENT DATE: 20250801
